FAERS Safety Report 7760234-5 (Version None)
Quarter: 2011Q3

REPORT INFORMATION
  Report Type: 
  Country: None (occurrence: None)
  Receive Date: 20110919
  Receipt Date: 20110912
  Transmission Date: 20111222
  Serious: Yes (Hospitalization)
  Sender: FDA-Public Use
  Company Number: US-GLAXOSMITHKLINE-A0944849A

PATIENT
  Age: 46 Year
  Sex: Male

DRUGS (1)
  1. WELLBUTRIN SR [Suspect]
     Dosage: 150MG UNKNOWN
     Route: 065
     Dates: start: 20100701

REACTIONS (1)
  - BRAIN OPERATION [None]
